FAERS Safety Report 22926849 (Version 3)
Quarter: 2023Q4

REPORT INFORMATION
  Report Type: Report from Study
  Country: CA (occurrence: CA)
  Receive Date: 20230910
  Receipt Date: 20231013
  Transmission Date: 20240110
  Serious: Yes (Other)
  Sender: FDA-Public Use
  Company Number: CA-Vifor (International) Inc.-VIT-2023-06520

PATIENT
  Age: 68 Year
  Sex: Male

DRUGS (5)
  1. AVACOPAN [Suspect]
     Active Substance: AVACOPAN
     Indication: Anti-neutrophil cytoplasmic antibody positive vasculitis
     Dosage: BID
     Route: 048
     Dates: start: 20230817
  2. CANNABIDIOL [Concomitant]
     Active Substance: CANNABIDIOL
     Indication: Relaxation therapy
     Dosage: 25 MILLIGRAM, QD
  3. CANNABIDIOL [Concomitant]
     Active Substance: CANNABIDIOL
     Indication: Agitation
  4. HERBALS\TETRAHYDROCANNABINOL UNSPECIFIED [Concomitant]
     Active Substance: HERBALS\TETRAHYDROCANNABINOL UNSPECIFIED
     Dosage: 1 DAY OUT OF 2
  5. PREDNISONE [Concomitant]
     Active Substance: PREDNISONE
     Dosage: UNK
     Dates: end: 2023

REACTIONS (7)
  - Tunnel vision [Unknown]
  - Visual impairment [Unknown]
  - Confusional state [Unknown]
  - COVID-19 [Unknown]
  - Muscle spasms [Unknown]
  - Insomnia [Unknown]
  - Chills [Unknown]

NARRATIVE: CASE EVENT DATE: 20230101
